FAERS Safety Report 9142601 (Version 1)
Quarter: 2013Q1

REPORT INFORMATION
  Report Type: Spontaneous
  Country: BR (occurrence: BR)
  Receive Date: 20130306
  Receipt Date: 20130306
  Transmission Date: 20140127
  Serious: Yes (Other)
  Sender: FDA-Public Use
  Company Number: BR-JNJFOC-20130212133

PATIENT
  Sex: 0

DRUGS (1)
  1. RISPERIDONE [Suspect]
     Indication: SCHIZOPHRENIA
     Route: 065

REACTIONS (50)
  - Depression [Unknown]
  - Drug dependence [Unknown]
  - Epilepsy [Unknown]
  - Dependence [Unknown]
  - Hyperkinesia [Unknown]
  - Hyperprolactinaemia [Unknown]
  - Disturbance in attention [Unknown]
  - Asthenia [Unknown]
  - Somnolence [Unknown]
  - Memory impairment [Unknown]
  - Tension [Unknown]
  - Hypersomnia [Unknown]
  - Insomnia [Unknown]
  - Abnormal dreams [Unknown]
  - Dystonia [Unknown]
  - Muscle rigidity [Unknown]
  - Hypokinesia [Unknown]
  - Hyperkinesia [Unknown]
  - Indifference [Unknown]
  - Tremor [Unknown]
  - Akathisia [Unknown]
  - Paraesthesia [Unknown]
  - Accommodation disorder [Unknown]
  - Salivary hypersecretion [Unknown]
  - Aptyalism [Unknown]
  - Nausea [Unknown]
  - Diarrhoea [Unknown]
  - Constipation [Unknown]
  - Dysuria [Unknown]
  - Polyuria [Unknown]
  - Dizziness postural [Unknown]
  - Palpitations [Unknown]
  - Erythema [Unknown]
  - Pruritus [Unknown]
  - Photosensitivity reaction [Unknown]
  - Pigmentation disorder [Unknown]
  - Weight increased [Unknown]
  - Weight decreased [Unknown]
  - Menorrhagia [Unknown]
  - Amenorrhoea [Unknown]
  - Galactorrhoea [Unknown]
  - Gynaecomastia [Unknown]
  - Libido increased [Unknown]
  - Libido decreased [Unknown]
  - Erectile dysfunction [Unknown]
  - Ejaculation disorder [Unknown]
  - Orgasm abnormal [Unknown]
  - Vulvovaginal dryness [Unknown]
  - Headache [Unknown]
  - Migraine [Unknown]
